FAERS Safety Report 12632585 (Version 2)
Quarter: 2016Q3

REPORT INFORMATION
  Report Type: Spontaneous
  Country: US (occurrence: US)
  Receive Date: 20160808
  Receipt Date: 20160808
  Transmission Date: 20161109
  Serious: No
  Sender: FDA-Public Use
  Company Number: US-BEH-2015056123

PATIENT
  Sex: Female
  Weight: 65 kg

DRUGS (17)
  1. TRICOR [Concomitant]
     Active Substance: FENOFIBRATE
  2. QNASL [Concomitant]
     Active Substance: BECLOMETHASONE DIPROPIONATE
  3. OMEPRAZOLE. [Concomitant]
     Active Substance: OMEPRAZOLE
  4. CELEBREX [Concomitant]
     Active Substance: CELECOXIB
  5. FENOFIBRATE. [Concomitant]
     Active Substance: FENOFIBRATE
  6. EPIPEN [Concomitant]
     Active Substance: EPINEPHRINE
  7. ASPIRIN. [Concomitant]
     Active Substance: ASPIRIN
  8. LORSARTAN POTASSIUM [Concomitant]
  9. MUPIROCIN. [Concomitant]
     Active Substance: MUPIROCIN
  10. QVAR [Concomitant]
     Active Substance: BECLOMETHASONE DIPROPIONATE
  11. OCEAN SPRAY [Concomitant]
  12. VITAMIN D3 [Concomitant]
     Active Substance: CHOLECALCIFEROL
  13. HIZENTRA [Suspect]
     Active Substance: HUMAN IMMUNOGLOBULIN G
     Indication: IMMUNODEFICIENCY COMMON VARIABLE
     Dosage: STRENGTH OF DOSAGE FORM : 10GM 50 ML VIAL
     Route: 058
  14. LIDOCAINE. [Concomitant]
     Active Substance: LIDOCAINE
  15. METFORMIN [Concomitant]
     Active Substance: METFORMIN HYDROCHLORIDE
  16. LIDOCAINE/ PRILOCAINE [Concomitant]
  17. ALL OTHER THERAPEUTIC PRODUCTS [Concomitant]
     Active Substance: UNSPECIFIED INGREDIENT

REACTIONS (2)
  - Discomfort [Unknown]
  - Injection site swelling [Unknown]
